FAERS Safety Report 14600723 (Version 1)
Quarter: 2018Q1

REPORT INFORMATION
  Report Type: Spontaneous
  Country: US (occurrence: US)
  Receive Date: 20180305
  Receipt Date: 20180305
  Transmission Date: 20180509
  Serious: No
  Sender: FDA-Public Use
  Company Number: US-SUNOVION-2018SUN000694

PATIENT
  Sex: Female
  Weight: 68.27 kg

DRUGS (3)
  1. VITAMINS [Concomitant]
     Active Substance: VITAMINS
     Dosage: UNK
  2. LATUDA [Suspect]
     Active Substance: LURASIDONE HYDROCHLORIDE
     Indication: SOCIAL ANXIETY DISORDER
     Dosage: UNK, QD
     Route: 048
     Dates: start: 201611, end: 201702
  3. CELEXA [Concomitant]
     Active Substance: CITALOPRAM HYDROBROMIDE
     Indication: ANXIETY
     Dosage: 20 MG, QD

REACTIONS (4)
  - Tremor [Unknown]
  - Anxiety [Unknown]
  - Off label use [Unknown]
  - Feeling abnormal [Unknown]
